FAERS Safety Report 6145546-3 (Version None)
Quarter: 2009Q2

REPORT INFORMATION
  Report Type: 
  Country: None (occurrence: None)
  Receive Date: 20090402
  Receipt Date: 20090320
  Transmission Date: 20091009
  Serious: Yes (Other)
  Sender: FDA-Public Use
  Company Number: PAR_02908_2009

PATIENT

DRUGS (5)
  1. IBUPROFEN [Suspect]
     Indication: ANALGESIC THERAPY
     Dosage: (DF)
  2. RIVAROXABAN [Suspect]
     Indication: THROMBOSIS PROPHYLAXIS
     Dosage: (DF ORAL)
     Route: 048
  3. INDOMETHACIN [Concomitant]
  4. VOLTAREN [Concomitant]
  5. VALORON /00205402/ [Concomitant]

REACTIONS (1)
  - TRANSAMINASES INCREASED [None]
